FAERS Safety Report 9004541 (Version 2)
Quarter: 2013Q1

REPORT INFORMATION
  Report Type: Spontaneous
  Country: US (occurrence: None)
  Receive Date: 20130103
  Receipt Date: 20130103
  Transmission Date: 20140127
  Serious: Yes (Other)
  Sender: FDA-Public Use
  Company Number: None

PATIENT
  Age: 39 Year
  Sex: Female
  Weight: 71.67 kg

DRUGS (1)
  1. MIRENA [Suspect]
     Dates: start: 20071214, end: 20121221

REACTIONS (8)
  - Vaginal haemorrhage [None]
  - Malaise [None]
  - Nausea [None]
  - Constipation [None]
  - Insomnia [None]
  - Dysgeusia [None]
  - Abdominal distension [None]
  - Abdominal pain upper [None]
